FAERS Safety Report 22400526 (Version 1)
Quarter: 2023Q2

REPORT INFORMATION
  Report Type: Spontaneous
  Country: US (occurrence: None)
  Receive Date: 20230601
  Receipt Date: 20230601
  Transmission Date: 20230722
  Serious: Yes (Disabling)
  Sender: FDA-Public Use
  Company Number: None

PATIENT
  Age: 59 Year
  Sex: Male
  Weight: 81 kg

DRUGS (11)
  1. RIFAMPIN [Suspect]
     Active Substance: RIFAMPIN
     Indication: Tuberculosis
     Dates: start: 20230115, end: 20230601
  2. AMLODIPINE [Concomitant]
     Active Substance: AMLODIPINE BESYLATE
  3. ISONIAZID [Concomitant]
     Active Substance: ISONIAZID
  4. LISINOPRIL [Concomitant]
     Active Substance: LISINOPRIL
  5. MECLIZINE [Concomitant]
     Active Substance: MECLIZINE HYDROCHLORIDE
  6. PYRIDOXINE HYDROCHLORIDE [Concomitant]
     Active Substance: PYRIDOXINE HYDROCHLORIDE
  7. RIFAMPIN [Concomitant]
     Active Substance: RIFAMPIN
  8. VALERIAN [Concomitant]
     Active Substance: VALERIAN
  9. MELATONIN [Concomitant]
     Active Substance: MELATONIN
  10. PRILOSEC [Concomitant]
     Active Substance: OMEPRAZOLE MAGNESIUM
  11. BENADRYL [Concomitant]
     Active Substance: DIPHENHYDRAMINE HYDROCHLORIDE

REACTIONS (3)
  - Lymphadenopathy [None]
  - Dizziness [None]
  - Tinnitus [None]

NARRATIVE: CASE EVENT DATE: 20230315
